FAERS Safety Report 5214793-7 (Version None)
Quarter: 2007Q1

REPORT INFORMATION
  Report Type: 
  Country: None (occurrence: None)
  Receive Date: 20061113
  Receipt Date: 20051216
  Transmission Date: 20070707
  Serious: Yes (Other)
  Sender: FDA-Public Use
  Company Number: US-JNJFOC-20050505399

PATIENT
  Age: 78 Year
  Sex: Male

DRUGS (2)
  1. LEVAQUIN [Suspect]
     Dosage: INTRAVENOUS
     Route: 042
  2. LEVAQUIN [Suspect]
     Dosage: ORAL
     Route: 048

REACTIONS (1)
  - RENAL FAILURE ACUTE [None]
